FAERS Safety Report 12716876 (Version 1)
Quarter: 2016Q3

REPORT INFORMATION
  Report Type: Spontaneous
  Country: US (occurrence: US)
  Receive Date: 20160906
  Receipt Date: 20160906
  Transmission Date: 20161109
  Serious: Yes (Hospitalization)
  Sender: FDA-Public Use
  Company Number: US-SMITH AND NEPHEW, INC-2016SMT00748

PATIENT
  Sex: Female
  Weight: 117.91 kg

DRUGS (2)
  1. UNSPECIFIED 14 MEDICATIONS [Concomitant]
  2. REGRANEX [Suspect]
     Active Substance: BECAPLERMIN
     Indication: DIABETIC ULCER
     Dosage: 12 HOURS ON AND 12 HOURS OFF, 1X/DAY
     Route: 061
     Dates: start: 201607, end: 2016

REACTIONS (1)
  - Osteomyelitis [Recovered/Resolved]
